FAERS Safety Report 21485522 (Version 1)
Quarter: 2022Q4

REPORT INFORMATION
  Report Type: Spontaneous
  Country: US (occurrence: US)
  Receive Date: 20221020
  Receipt Date: 20221020
  Transmission Date: 20230113
  Serious: Yes (Other)
  Sender: FDA-Public Use
  Company Number: US-TEVA-2022-US-2817475

PATIENT
  Age: 71 Year
  Sex: Male

DRUGS (3)
  1. SIMVASTATIN [Suspect]
     Active Substance: SIMVASTATIN
     Indication: Product used for unknown indication
     Route: 065
  2. ORGOVYX [Suspect]
     Active Substance: RELUGOLIX
     Indication: Prostate cancer
     Dosage: ONE TIME DOSE
     Route: 048
     Dates: start: 20220508, end: 20220508
  3. ORGOVYX [Suspect]
     Active Substance: RELUGOLIX
     Dosage: 120 MILLIGRAM DAILY;
     Route: 048
     Dates: start: 20220509

REACTIONS (5)
  - Urinary retention [Recovering/Resolving]
  - Haemoglobin abnormal [Not Recovered/Not Resolved]
  - Drug hypersensitivity [Unknown]
  - Dysuria [Recovering/Resolving]
  - Muscle spasms [Recovered/Resolved]
